FAERS Safety Report 4994049-8 (Version None)
Quarter: 2006Q2

REPORT INFORMATION
  Report Type: 
  Country: None (occurrence: None)
  Receive Date: 20060503
  Receipt Date: 20060419
  Transmission Date: 20061013
  Serious: Yes (Disabling, Other)
  Sender: FDA-Public Use
  Company Number: DE200601004120

PATIENT
  Age: 30 Year
  Sex: Female
  Weight: 73 kg

DRUGS (3)
  1. CYMBALTA [Suspect]
     Indication: DEPRESSION
     Dosage: SEE IMAGE, ORAL
     Route: 048
     Dates: start: 20050401, end: 20060207
  2. CYMBALTA [Suspect]
     Indication: DEPRESSION
     Dosage: SEE IMAGE, ORAL
     Route: 048
     Dates: start: 20060117
  3. MIRTAZAPINE [Concomitant]

REACTIONS (7)
  - CHILLS [None]
  - DIABETES MELLITUS INSULIN-DEPENDENT [None]
  - DRUG WITHDRAWAL SYNDROME [None]
  - INFLUENZA [None]
  - RESTLESSNESS [None]
  - SLEEP DISORDER [None]
  - VISUAL DISTURBANCE [None]
